FAERS Safety Report 20505187 (Version 11)
Quarter: 2023Q1

REPORT INFORMATION
  Report Type: Report from Study
  Country: CN (occurrence: None)
  Receive Date: 20220223
  Receipt Date: 20230228
  Transmission Date: 20230418
  Serious: Yes (Hospitalization)
  Sender: FDA-Public Use
  Company Number: CN-ROCHE-2983870

PATIENT
  Age: 35 Year
  Sex: Female
  Weight: 49.1 kg

DRUGS (24)
  1. ATEZOLIZUMAB [Suspect]
     Active Substance: ATEZOLIZUMAB
     Indication: Non-small cell lung cancer stage IV
     Dosage: START DATE OF MOST RECENT DOSE OF STUDY DRUG PRIOR TO SAE- 01/DEC/2021
     Route: 041
     Dates: start: 20211018
  2. BEVACIZUMAB [Suspect]
     Active Substance: BEVACIZUMAB
     Indication: Non-small cell lung cancer stage IV
     Dosage: START DATE OF MOST RECENT DOSE OF STUDY DRUG PRIOR TO SAE: 01/DEC/2021
     Route: 042
     Dates: start: 20211018
  3. PEMETREXED [Suspect]
     Active Substance: PEMETREXED
     Indication: Non-small cell lung cancer stage IV
     Dosage: START DATE OF MOST RECENT DOSE (730 MG) OF STUDY DRUG PRIOR TO SAE: 01-DEC-2021
     Route: 042
     Dates: start: 20211018
  4. CARBOPLATIN [Suspect]
     Active Substance: CARBOPLATIN
     Indication: Non-small cell lung cancer stage IV
     Dosage: START DATE OF MOST RECENT DOSE (900 MG) OF STUDY DRUG PRIOR TO SAE: 01/DEC/2021
     Route: 042
     Dates: start: 20211018
  5. FOLIC ACID [Concomitant]
     Active Substance: FOLIC ACID
     Indication: Chemotherapy
     Dates: start: 20211016, end: 20220802
  6. DEXAMETHASONE ACETATE [Concomitant]
     Active Substance: DEXAMETHASONE ACETATE
     Route: 048
     Dates: start: 20211130, end: 20211202
  7. DEXAMETHASONE ACETATE [Concomitant]
     Active Substance: DEXAMETHASONE ACETATE
     Route: 048
     Dates: start: 20211222, end: 20211224
  8. FOSAPREPITANT DIMEGLUMINE [Concomitant]
     Active Substance: FOSAPREPITANT DIMEGLUMINE
     Dates: start: 20211201, end: 20211201
  9. DIPHENHYDRAMINE HYDROCHLORIDE [Concomitant]
     Active Substance: DIPHENHYDRAMINE HYDROCHLORIDE
     Dates: start: 20211201, end: 20211201
  10. TROPISETRON HYDROCHLORIDE [Concomitant]
     Active Substance: TROPISETRON HYDROCHLORIDE
     Dates: start: 20211201, end: 20211201
  11. METOCLOPRAMIDE DIHYDROCHLORIDE [Concomitant]
     Dates: start: 20211201, end: 20211201
  12. METOCLOPRAMIDE DIHYDROCHLORIDE [Concomitant]
     Dates: start: 20211113, end: 20211213
  13. FAMOTIDINE [Concomitant]
     Active Substance: FAMOTIDINE
     Dates: start: 20211201, end: 20211201
  14. FONDAPARINUX SODIUM [Concomitant]
     Active Substance: FONDAPARINUX SODIUM
     Dates: start: 20211201, end: 20211201
  15. RABEPRAZOLE SODIUM [Concomitant]
     Active Substance: RABEPRAZOLE SODIUM
     Indication: Nausea
     Dates: start: 20211217, end: 20211221
  16. MOSAPRIDE CITRATE [Concomitant]
     Active Substance: MOSAPRIDE CITRATE
     Indication: Nausea
     Dates: start: 20211217, end: 20211221
  17. RECOMBINANT HUMAN GRANULOCYTE COLONY STIMULATING FACTOR (UNK INGREDIEN [Concomitant]
     Indication: White blood cell count decreased
     Dates: start: 20211214, end: 20211215
  18. RECOMBINANT HUMAN GRANULOCYTE COLONY STIMULATING FACTOR (UNK INGREDIEN [Concomitant]
     Indication: Neutrophil count decreased
     Dates: start: 20211219, end: 20211220
  19. CAFFEIC ACID [Concomitant]
     Active Substance: CAFFEIC ACID
     Dates: start: 20220114, end: 20220120
  20. VITAMIN B6 [Concomitant]
     Active Substance: PYRIDOXINE HYDROCHLORIDE
     Dates: start: 20211216, end: 20211220
  21. CIMETIDINE [Concomitant]
     Active Substance: CIMETIDINE
     Dates: start: 20211216, end: 20211220
  22. MANNITOL [Concomitant]
     Active Substance: MANNITOL
     Indication: Dehydration
     Dates: start: 20211218, end: 20211218
  23. DEXAMETHASONE SODIUM PHOSPHATE [Concomitant]
     Active Substance: DEXAMETHASONE SODIUM PHOSPHATE
     Indication: Nausea
     Dates: start: 20211218, end: 20211218
  24. PROMETHAZINE HYDROCHLORIDE [Concomitant]
     Active Substance: PROMETHAZINE HYDROCHLORIDE
     Indication: Nausea
     Dates: start: 20211218, end: 20211218

REACTIONS (1)
  - Platelet count decreased [Recovered/Resolved]

NARRATIVE: CASE EVENT DATE: 20211214
